FAERS Safety Report 23737580 (Version 1)
Quarter: 2024Q2

REPORT INFORMATION
  Report Type: Spontaneous
  Country: JP (occurrence: JP)
  Receive Date: 20240412
  Receipt Date: 20240412
  Transmission Date: 20240716
  Serious: Yes (Hospitalization, Other)
  Sender: FDA-Public Use
  Company Number: JP-MSD-2303JPN002671J

PATIENT
  Sex: Female

DRUGS (2)
  1. KEYTRUDA [Suspect]
     Active Substance: PEMBROLIZUMAB
     Indication: Uterine cancer
     Dosage: 200 MILLIGRAM, Q3W
     Route: 041
  2. LENVATINIB MESYLATE [Suspect]
     Active Substance: LENVATINIB MESYLATE
     Indication: Uterine cancer
     Dosage: UNK
     Route: 048
     Dates: end: 20221225

REACTIONS (6)
  - Cytokine release syndrome [Unknown]
  - Ascites [Unknown]
  - Gallbladder oedema [Unknown]
  - Pyrexia [Unknown]
  - Lymphadenopathy [Unknown]
  - Pain [Unknown]

NARRATIVE: CASE EVENT DATE: 20221224
